FAERS Safety Report 21662853 (Version 1)
Quarter: 2022Q4

REPORT INFORMATION
  Report Type: Spontaneous
  Country: JP (occurrence: JP)
  Receive Date: 20221130
  Receipt Date: 20221130
  Transmission Date: 20230112
  Serious: Yes (Hospitalization, Other)
  Sender: FDA-Public Use
  Company Number: JP-PFIZER INC-PV202200108535

PATIENT
  Age: 9 Decade
  Sex: Female

DRUGS (11)
  1. TRIAZOLAM [Suspect]
     Active Substance: TRIAZOLAM
     Dosage: 1 TABLET ONCE A DAY BEFORE GOING TO BED
  2. BROTIZOLAM [Suspect]
     Active Substance: BROTIZOLAM
     Dosage: 1 TABLET ONCE A DAY BEFORE GOING TO BED
  3. ACETAMINOPHEN [Concomitant]
     Active Substance: ACETAMINOPHEN
     Dosage: 1 TABLET, 3 TIMES A DAY AFTER EVERY MEAL
  4. TRICHLORMETHIAZIDE [Concomitant]
     Active Substance: TRICHLORMETHIAZIDE
     Dosage: 1 TABLET ONCE A DAY AFTER BREAKFAST
  5. CANDESARTAN [Concomitant]
     Active Substance: CANDESARTAN
     Dosage: 1 TABLET ONCE A DAY AFTER BREAKFAST
  6. ASPIRIN [Concomitant]
     Active Substance: ASPIRIN
     Dosage: 1 TABLET ONCE A DAY AFTER BREAKFAST
  7. LOXOPROFEN SODIUM [Concomitant]
     Active Substance: LOXOPROFEN SODIUM
     Dosage: 1 TABLET, 3 TIMES A DAY, AFTER EVERY MEAL
  8. SOLIFENACIN SUCCINATE [Concomitant]
     Active Substance: SOLIFENACIN SUCCINATE
     Dosage: 1 TABLET ONCE A DAY AFTER DINNER
  9. PRAVASTATIN SODIUM [Concomitant]
     Active Substance: PRAVASTATIN SODIUM
     Dosage: 1 TABLET ONCE A DAY AFTER DINNER
  10. RABEPRAZOLE SODIUM [Concomitant]
     Active Substance: RABEPRAZOLE SODIUM
     Dosage: 1 TABLET ONCE A DAY AFTER DINNER
  11. SODIUM FERROUS CITRATE [Concomitant]
     Active Substance: SODIUM FERROUS CITRATE
     Dosage: 1 TABLET, 2 TIMES A DAY, AFTER BREAKFAST AND DINNER

REACTIONS (3)
  - Femoral neck fracture [Unknown]
  - Fall [Unknown]
  - Dizziness [Unknown]
